FAERS Safety Report 4932876-3 (Version None)
Quarter: 2006Q1

REPORT INFORMATION
  Report Type: 
  Country: None (occurrence: None)
  Receive Date: 20060306
  Receipt Date: 20060223
  Transmission Date: 20060701
  Serious: Yes (Other)
  Sender: FDA-Public Use
  Company Number: PHEH2006US02539

PATIENT
  Age: 61 Year
  Sex: Female

DRUGS (2)
  1. FEMARA [Suspect]
     Indication: BREAST CANCER
     Dosage: 2.5 MG, QD
     Route: 048
     Dates: start: 20050301
  2. EFFEXOR [Concomitant]
     Indication: HOT FLUSH

REACTIONS (1)
  - BLOOD GLUCOSE INCREASED [None]
